FAERS Safety Report 8372536-2 (Version None)
Quarter: 2012Q2

REPORT INFORMATION
  Report Type: 
  Country: None (occurrence: None)
  Receive Date: 20120521
  Receipt Date: 20120517
  Transmission Date: 20120825
  Serious: Yes (Death, Hospitalization)
  Sender: FDA-Public Use
  Company Number: US-ASTRAZENECA-2011SE41545

PATIENT
  Age: 61 Year
  Sex: Female

DRUGS (55)
  1. NEXIUM [Suspect]
     Route: 048
     Dates: start: 20030501, end: 20090401
  2. NEXIUM [Suspect]
     Route: 048
     Dates: start: 20030522
  3. HYZAAR [Concomitant]
     Dosage: 50-12.5MG
     Dates: start: 20030423
  4. LYRICA [Concomitant]
  5. GLIMEPIRIDE [Concomitant]
  6. EUISTA [Concomitant]
     Indication: MENOPAUSE
  7. NITROGLYCERIN [Concomitant]
     Indication: CARDIAC DISORDER
  8. AMBIEN [Concomitant]
     Indication: SLEEP DISORDER
  9. WARFARIN SODIUM [Concomitant]
  10. CORG [Concomitant]
  11. HYDROCOONE/APAP [Concomitant]
     Indication: PAIN
     Dosage: 7.5/750
  12. CELEBREX [Concomitant]
     Dates: start: 20030618
  13. METOLAZONE [Concomitant]
     Dates: start: 20030424
  14. POTASSIUM CL [Concomitant]
  15. FLUTICASONE FUROATE [Concomitant]
     Dosage: 50 MCG
  16. CEFPROZIL [Concomitant]
  17. PROMETHAZINE [Concomitant]
  18. NEXIUM [Suspect]
     Indication: ABDOMINAL PAIN UPPER
     Route: 048
  19. RAZADYNE [Concomitant]
     Indication: MEMORY IMPAIRMENT
  20. PLAUIX [Concomitant]
     Indication: APOLIPOPROTEIN ABNORMAL
  21. ISOSORBIDE MONONITRATE [Concomitant]
  22. CEFADROXIL [Concomitant]
  23. FEXOFENADINE [Concomitant]
  24. ALTACE [Concomitant]
  25. NEXIUM [Suspect]
     Indication: GASTROOESOPHAGEAL REFLUX DISEASE
     Route: 048
  26. NEXIUM [Suspect]
     Route: 048
     Dates: start: 20030501, end: 20090401
  27. RANITIDINE [Concomitant]
     Dates: start: 20090401, end: 20110901
  28. ALPRAZOLAM [Concomitant]
  29. ALLOPREERINOL [Concomitant]
     Indication: GOUT
  30. AZITHORMYCIN [Concomitant]
  31. PRAUASTATIN SODIUM [Concomitant]
  32. SPIRONOLACTONE [Concomitant]
  33. COZZAAR [Concomitant]
  34. LEVAQUIN [Concomitant]
     Dates: start: 20030606
  35. NEXIUM [Suspect]
     Route: 048
     Dates: start: 20030522
  36. PREDNISONE [Concomitant]
  37. AMIODARONE HCL [Concomitant]
  38. DIOUAN [Concomitant]
  39. AMITRIPTYLINE HCL [Concomitant]
  40. CLINDAMYCIN HCL [Concomitant]
  41. ALPRAZOLAM [Concomitant]
     Dates: start: 20030620
  42. ENALAPRIL MALEATE [Concomitant]
  43. METOLAZONE [Concomitant]
  44. HYZAAR [Concomitant]
  45. LOOASTATIN [Concomitant]
  46. NITROGLYCERIN [Concomitant]
     Dates: start: 20030520
  47. TEMAZEPAM [Concomitant]
  48. LUSPIRONE HCL [Concomitant]
  49. PLAUIX [Concomitant]
     Indication: CARDIAC DISORDER
  50. CARISOPRODOL [Concomitant]
  51. CARISOPRODOL [Concomitant]
     Dates: start: 20030620
  52. SPIRIUA [Concomitant]
     Dosage: 18 MCG
  53. FUROSEMIDE [Concomitant]
  54. SPIRONOLACTONE [Concomitant]
     Dates: start: 20030423
  55. AVANDIA [Concomitant]
     Dates: start: 20030620

REACTIONS (9)
  - CORONARY ARTERY DISEASE [None]
  - UPPER LIMB FRACTURE [None]
  - CARDIAC FAILURE CONGESTIVE [None]
  - LOWER LIMB FRACTURE [None]
  - RENAL FAILURE CHRONIC [None]
  - FRACTURE [None]
  - RIB FRACTURE [None]
  - TYPE 2 DIABETES MELLITUS [None]
  - OSTEOPOROSIS [None]
